FAERS Safety Report 7153273-9 (Version None)
Quarter: 2010Q4

REPORT INFORMATION
  Report Type: 
  Country: None (occurrence: None)
  Receive Date: 20101213
  Receipt Date: 20101202
  Transmission Date: 20110411
  Serious: Yes (Death)
  Sender: FDA-Public Use
  Company Number: EE-ROCHE-741158

PATIENT
  Sex: Male
  Weight: 78 kg

DRUGS (3)
  1. AVASTIN [Suspect]
     Route: 042
     Dates: start: 20100629, end: 20100921
  2. ACYCLOVIR SODIUM [Concomitant]
     Indication: HERPES ZOSTER
     Route: 048
     Dates: start: 20100921, end: 20100930
  3. XELIRI [Concomitant]
     Dates: start: 20100629

REACTIONS (1)
  - GASTROINTESTINAL HAEMORRHAGE [None]
